FAERS Safety Report 7763114-4 (Version None)
Quarter: 2011Q3

REPORT INFORMATION
  Report Type: 
  Country: None (occurrence: None)
  Receive Date: 20110920
  Receipt Date: 20110905
  Transmission Date: 20111222
  Serious: Yes (Hospitalization, Disabling)
  Sender: FDA-Public Use
  Company Number: PHHY2011EC81439

PATIENT
  Sex: Female

DRUGS (2)
  1. EXFORGE [Suspect]
     Indication: HYPERTENSION
     Dosage: 1 DF (160/5 MG) DAILY
     Dates: start: 20090519, end: 20110601
  2. LOSARTAN POTASSIUM [Suspect]
     Dosage: 50 MG, UNK
     Dates: start: 20110601

REACTIONS (4)
  - VIITH NERVE PARALYSIS [None]
  - LACRIMATION INCREASED [None]
  - OEDEMA PERIPHERAL [None]
  - BLOOD PRESSURE INCREASED [None]
